FAERS Safety Report 7888332-6 (Version None)
Quarter: 2011Q4

REPORT INFORMATION
  Report Type: 
  Country: None (occurrence: None)
  Receive Date: 20111103
  Receipt Date: 20111024
  Transmission Date: 20120403
  Serious: Yes (Death)
  Sender: FDA-Public Use
  Company Number: IN-ABBOTT-11P-078-0860716-00

PATIENT
  Sex: Male

DRUGS (2)
  1. KALETRA [Suspect]
     Indication: HIV INFECTION
     Route: 048
     Dates: start: 20110412
  2. RALTEGRAVIR [Concomitant]
     Indication: HIV INFECTION
     Route: 048

REACTIONS (1)
  - MYOCARDIAL INFARCTION [None]
